FAERS Safety Report 12904375 (Version 2)
Quarter: 2016Q4

REPORT INFORMATION
  Report Type: Spontaneous
  Country: DK (occurrence: DK)
  Receive Date: 20161102
  Receipt Date: 20161129
  Transmission Date: 20170207
  Serious: Yes (Disabling)
  Sender: FDA-Public Use
  Company Number: PHHY2015DK154421

PATIENT
  Age: 79 Year
  Sex: Female

DRUGS (4)
  1. ACLASTA [Suspect]
     Active Substance: ZOLEDRONIC ACID
     Indication: OSTEOPOROSIS
     Dosage: UNK
     Route: 065
     Dates: end: 20151116
  2. UNIKALK PLUS [Concomitant]
     Indication: PRODUCT USED FOR UNKNOWN INDICATION
     Dosage: 1 DF, QD ( (400 MG + 5 MICROGRAMS) EACH MORNING
     Route: 065
  3. VAGIFEM [Concomitant]
     Active Substance: ESTRADIOL
     Indication: PRODUCT USED FOR UNKNOWN INDICATION
     Dosage: 1 DF, (1 VAGINAL DAILY FOR 2 WEEKS, THEN 1 VAGINAL 2 TIMES PER WEEK)
     Route: 067
  4. DERMOVAT [Concomitant]
     Active Substance: CLOBETASOL
     Indication: PRODUCT USED FOR UNKNOWN INDICATION
     Dosage: 0.5 MG/G, UNK
     Route: 065

REACTIONS (11)
  - Visual impairment [Unknown]
  - Ocular hyperaemia [Unknown]
  - Uveitis [Recovered/Resolved]
  - Blepharospasm [Unknown]
  - Iris adhesions [Unknown]
  - Eye pain [Unknown]
  - Blindness unilateral [Unknown]
  - Anterior chamber fibrin [Unknown]
  - Vision blurred [Unknown]
  - Eye irritation [Recovered/Resolved]
  - Eye inflammation [Unknown]

NARRATIVE: CASE EVENT DATE: 20151112
